FAERS Safety Report 23848006 (Version 10)
Quarter: 2024Q4

REPORT INFORMATION
  Report Type: Report from Study
  Country: CO (occurrence: CO)
  Receive Date: 20240513
  Receipt Date: 20241115
  Transmission Date: 20250115
  Serious: Yes (Hospitalization, Other)
  Sender: EXELIXIS
  Company Number: CO-IPSEN Group, Research and Development-2024-07643

PATIENT
  Age: 46 Year
  Sex: Female
  Weight: 105 kg

DRUGS (8)
  1. CABOMETYX [Suspect]
     Active Substance: CABOZANTINIB S-MALATE
     Indication: Renal cell carcinoma
     Dosage: 60 MG, QD
     Route: 048
     Dates: start: 20240423
  2. CABOMETYX [Suspect]
     Active Substance: CABOZANTINIB S-MALATE
     Dosage: 40 MG DAILY
     Route: 048
     Dates: end: 202407
  3. CABOMETYX [Suspect]
     Active Substance: CABOZANTINIB S-MALATE
     Dosage: 40 MG
     Route: 048
     Dates: start: 20241005
  4. ONDANSETRON [Concomitant]
     Active Substance: ONDANSETRON
     Indication: Prophylaxis of nausea and vomiting
     Dosage: EVERY 24 HOURS
     Route: 048
     Dates: start: 20240423
  5. BISACODYL [Concomitant]
     Active Substance: BISACODYL
     Indication: Gastrointestinal motility disorder
     Dosage: UNK, TID
     Route: 048
     Dates: start: 202404
  6. LACTULOSE [Concomitant]
     Active Substance: LACTULOSE
     Indication: Gastrointestinal motility disorder
     Dosage: UNK, TID
     Route: 048
     Dates: start: 202404
  7. POLYETHYLENE GLYCOLS [Concomitant]
     Active Substance: POLYETHYLENE GLYCOLS
     Indication: Gastrointestinal motility disorder
     Dosage: UNK, BID
     Route: 048
     Dates: start: 202405
  8. PREGABALIN [Concomitant]
     Active Substance: PREGABALIN
     Indication: Pain
     Dosage: 150 MG, BID
     Route: 048
     Dates: start: 2023

REACTIONS (45)
  - Nasal congestion [Not Recovered/Not Resolved]
  - Bacteriuria [Not Recovered/Not Resolved]
  - Bacteraemia [Not Recovered/Not Resolved]
  - Discomfort [Not Recovered/Not Resolved]
  - Dysstasia [Not Recovered/Not Resolved]
  - Vulvovaginal inflammation [Not Recovered/Not Resolved]
  - Oropharyngeal plaque [Not Recovered/Not Resolved]
  - Epistaxis [Not Recovered/Not Resolved]
  - Blister [Not Recovered/Not Resolved]
  - Pain [Not Recovered/Not Resolved]
  - Pain in extremity [Not Recovered/Not Resolved]
  - Hepatotoxicity [Not Recovered/Not Resolved]
  - Neuropathy peripheral [Not Recovered/Not Resolved]
  - Abdominal pain upper [Not Recovered/Not Resolved]
  - Metastases to liver [Not Recovered/Not Resolved]
  - Oral disorder [Not Recovered/Not Resolved]
  - Skin hypopigmentation [Not Recovered/Not Resolved]
  - Aphonia [Not Recovered/Not Resolved]
  - Oral mucosal exfoliation [Not Recovered/Not Resolved]
  - Hair colour changes [Not Recovered/Not Resolved]
  - Alopecia [Not Recovered/Not Resolved]
  - Skin exfoliation [Not Recovered/Not Resolved]
  - Skin ulcer haemorrhage [Not Recovered/Not Resolved]
  - Skin ulcer [Not Recovered/Not Resolved]
  - Weight decreased [Not Recovered/Not Resolved]
  - Mucosal inflammation [Not Recovered/Not Resolved]
  - Toxicity to various agents [Not Recovered/Not Resolved]
  - Gait disturbance [Not Recovered/Not Resolved]
  - Gastrointestinal motility disorder [Not Recovered/Not Resolved]
  - Faeces hard [Not Recovered/Not Resolved]
  - Throat irritation [Not Recovered/Not Resolved]
  - Burning sensation [Not Recovered/Not Resolved]
  - Proctalgia [Not Recovered/Not Resolved]
  - Oxygen saturation decreased [Unknown]
  - Haemorrhoids [Not Recovered/Not Resolved]
  - Malaise [Not Recovered/Not Resolved]
  - Vomiting [Not Recovered/Not Resolved]
  - Stomatitis [Not Recovered/Not Resolved]
  - Diarrhoea [Not Recovered/Not Resolved]
  - Vomiting [Not Recovered/Not Resolved]
  - Dysgeusia [Not Recovered/Not Resolved]
  - Drug ineffective [Unknown]
  - Product supply issue [Unknown]
  - Product dose omission issue [Unknown]
  - Off label use [Unknown]

NARRATIVE: CASE EVENT DATE: 20240401
